FAERS Safety Report 10171570 (Version 1)
Quarter: 2014Q2

REPORT INFORMATION
  Report Type: Spontaneous
  Country: US (occurrence: None)
  Receive Date: 20140513
  Receipt Date: 20140513
  Transmission Date: 20141212
  Serious: Yes (Hospitalization)
  Sender: FDA-Public Use
  Company Number: None

PATIENT
  Age: 65 Year
  Sex: Male

DRUGS (10)
  1. INSULIN GLARGINE [Suspect]
     Indication: HYPERGLYCAEMIA
     Dosage: 20 UNITS, AT BEDTIME, SC?
     Route: 058
     Dates: start: 20140319, end: 20140319
  2. DOKAMETHASONE [Concomitant]
  3. INSULIN [Concomitant]
  4. LABETALOL [Concomitant]
  5. LORAZAPAM [Concomitant]
  6. MAGNESIUM SULFATE [Concomitant]
  7. MORPHINE [Concomitant]
  8. ONDANSETRON [Concomitant]
  9. POTASSIUM CHLORIDE [Concomitant]
  10. VANCOMVCIN [Concomitant]

REACTIONS (1)
  - Blood glucose decreased [None]
